FAERS Safety Report 5019640-4 (Version None)
Quarter: 2006Q2

REPORT INFORMATION
  Report Type: 
  Country: None (occurrence: None)
  Receive Date: 20060601
  Receipt Date: 20060519
  Transmission Date: 20061013
  Serious: Yes (Hospitalization, Other)
  Sender: FDA-Public Use
  Company Number: 2006066760

PATIENT
  Age: 45 Year
  Sex: Male
  Weight: 61.2356 kg

DRUGS (4)
  1. DEPO-MEDROL [Suspect]
     Indication: ANALGESIC EFFECT
     Dosage: 80 MG (80 MG) INTRATHECAL
     Route: 037
     Dates: start: 20000326
  2. LIDOCAINE [Concomitant]
  3. MARCAINE [Concomitant]
  4. ISOVUE-300 [Concomitant]

REACTIONS (11)
  - BONE GRAFT [None]
  - EXOSTOSIS [None]
  - FORMICATION [None]
  - HYPERAESTHESIA [None]
  - HYPERSENSITIVITY [None]
  - HYPOAESTHESIA [None]
  - LOSS OF CONSCIOUSNESS [None]
  - PAIN [None]
  - SEXUAL DYSFUNCTION [None]
  - SLEEP DISORDER [None]
  - SURGERY [None]
